FAERS Safety Report 11179434 (Version 5)
Quarter: 2015Q4

REPORT INFORMATION
  Report Type: Report from Study
  Country: FR (occurrence: FR)
  Receive Date: 20150611
  Receipt Date: 20151211
  Transmission Date: 20160304
  Serious: Yes (Death, Other)
  Sender: FDA-Public Use
  Company Number: PHHY2015FR068965

PATIENT
  Age: 85 Year
  Sex: Female

DRUGS (10)
  1. IMOVANE [Concomitant]
     Active Substance: ZOPICLONE
     Indication: SLEEP DISORDER
     Dosage: 7.5 OT, UNK
     Route: 065
  2. AMLOR [Concomitant]
     Active Substance: AMLODIPINE BESYLATE
     Indication: ANGINA PECTORIS
  3. LEVOTHYROX [Concomitant]
     Active Substance: LEVOTHYROXINE
     Indication: THYROID DISORDER
     Dosage: 25 OT, UNK
     Route: 065
  4. PREVISCAN [Concomitant]
     Active Substance: FLUINDIONE
     Indication: COAGULOPATHY
     Dosage: 20 OT, UNK
     Route: 065
  5. INEXIUM//ESOMEPRAZOLE MAGNESIUM [Concomitant]
     Active Substance: ESOMEPRAZOLE MAGNESIUM
     Indication: GASTROOESOPHAGEAL REFLUX DISEASE
     Dosage: 40 MG, UNK
     Route: 065
  6. AMLOR [Concomitant]
     Active Substance: AMLODIPINE BESYLATE
     Indication: HYPERTENSION
     Dosage: 10 OT, UNK
     Route: 065
  7. AFINITOR [Suspect]
     Active Substance: EVEROLIMUS
     Indication: BREAST CANCER
     Dosage: 10 MG, QD
     Route: 048
     Dates: start: 20150126, end: 20150305
  8. EXEMESTANE. [Suspect]
     Active Substance: EXEMESTANE
     Indication: PRODUCT USED FOR UNKNOWN INDICATION
     Route: 065
     Dates: start: 20150126, end: 20150305
  9. CORDARONE [Concomitant]
     Active Substance: AMIODARONE HYDROCHLORIDE
     Indication: ARRHYTHMIA
     Dosage: 200 OT, UNK
     Route: 065
  10. LEXOMIL [Concomitant]
     Active Substance: BROMAZEPAM
     Indication: ANXIETY
     Route: 065

REACTIONS (13)
  - Somnolence [Unknown]
  - Decreased appetite [Unknown]
  - Pneumonitis [Unknown]
  - Cough [Unknown]
  - Productive cough [Unknown]
  - Dyspnoea [Unknown]
  - Fatigue [Unknown]
  - Malaise [Unknown]
  - Respiratory rate increased [Unknown]
  - Hepatic function abnormal [Unknown]
  - Death [Fatal]
  - General physical health deterioration [Unknown]
  - Dysstasia [Unknown]

NARRATIVE: CASE EVENT DATE: 2015
